FAERS Safety Report 11934249 (Version 1)
Quarter: 2016Q1

REPORT INFORMATION
  Report Type: Spontaneous
  Country: US (occurrence: US)
  Receive Date: 20160121
  Receipt Date: 20160121
  Transmission Date: 20160526
  Serious: No
  Sender: FDA-Public Use
  Company Number: US-PERRIGO-15US004103

PATIENT
  Age: 61 Year
  Sex: Male
  Weight: 118.37 kg

DRUGS (2)
  1. ACETAMINOPHEN\CAFFEINE\SALICYLATE [Suspect]
     Active Substance: ACETAMINOPHEN\CAFFEINE\SALICYLIC ACID
     Indication: CLUSTER HEADACHE
     Dosage: 2 TABLETS, EVERY 6 HOURS
     Route: 048
     Dates: start: 20150414, end: 20150415
  2. ACETAMINOPHEN\CAFFEINE\SALICYLATE [Suspect]
     Active Substance: ACETAMINOPHEN\CAFFEINE\SALICYLIC ACID
     Dosage: 2 TABLETS AT 0600, 2 TABLETS AT 1200 AND 1 TABLET IN THE EVENING, QD
     Route: 048
     Dates: start: 20150416

REACTIONS (2)
  - No adverse event [Recovered/Resolved]
  - Off label use [Unknown]

NARRATIVE: CASE EVENT DATE: 20150414
